FAERS Safety Report 25701111 (Version 1)
Quarter: 2025Q3

REPORT INFORMATION
  Report Type: Report from Study
  Country: US (occurrence: US)
  Receive Date: 20250819
  Receipt Date: 20250819
  Transmission Date: 20251021
  Serious: Yes (Other)
  Sender: TAKEDA
  Company Number: US-TAKEDA-2025TUS051210

PATIENT
  Sex: Female

DRUGS (10)
  1. FRUQUINTINIB [Suspect]
     Active Substance: FRUQUINTINIB
     Indication: Colon cancer
  2. FRUQUINTINIB [Suspect]
     Active Substance: FRUQUINTINIB
  3. AMOXICILLIN [Concomitant]
     Active Substance: AMOXICILLIN
  4. AVASTIN [Concomitant]
     Active Substance: BEVACIZUMAB
  5. AVASTIN [Concomitant]
     Active Substance: BEVACIZUMAB
  6. HYDROCORTISONE [Concomitant]
     Active Substance: HYDROCORTISONE
  7. LIDOCAINE\PRILOCAINE [Concomitant]
     Active Substance: LIDOCAINE\PRILOCAINE
  8. ONDANSETRON HYDROCHLORIDE [Concomitant]
     Active Substance: ONDANSETRON HYDROCHLORIDE
  9. PROCHLORPERAZINE [Concomitant]
     Active Substance: PROCHLORPERAZINE
  10. SPIRONOLACTONE [Concomitant]
     Active Substance: SPIRONOLACTONE

REACTIONS (2)
  - Hip fracture [Recovering/Resolving]
  - Diarrhoea [Recovering/Resolving]
